FAERS Safety Report 4784242-1 (Version None)
Quarter: 2005Q3

REPORT INFORMATION
  Report Type: 
  Country: None (occurrence: None)
  Receive Date: 20050928
  Receipt Date: 20050915
  Transmission Date: 20060218
  Serious: Yes (Death, Hospitalization)
  Sender: FDA-Public Use
  Company Number: 2005BI017375

PATIENT
  Age: 68 Year
  Sex: Male
  Weight: 58.514 kg

DRUGS (1)
  1. AVONEX [Suspect]
     Indication: MULTIPLE SCLEROSIS
     Dosage: 30 UG; QW; IM
     Route: 030
     Dates: start: 20010101, end: 20020101

REACTIONS (6)
  - ASTHENIA [None]
  - CEREBRAL DISORDER [None]
  - CONVULSION [None]
  - DEMENTIA ALZHEIMER'S TYPE [None]
  - FALL [None]
  - MULTIPLE SCLEROSIS [None]
